FAERS Safety Report 6122301-1 (Version None)
Quarter: 2009Q1

REPORT INFORMATION
  Report Type: 
  Country: None (occurrence: None)
  Receive Date: 20090316
  Receipt Date: 20090220
  Transmission Date: 20090719
  Serious: Yes (Hospitalization)
  Sender: FDA-Public Use
  Company Number: 2009EU000817

PATIENT
  Sex: Male

DRUGS (3)
  1. PROGRAF [Suspect]
     Indication: HEART TRANSPLANT
     Dosage: 3 MG, BID
  2. CELLCEPT (MYCOPHENOLATE MOFETIL0 [Concomitant]
  3. CORTICOSTEROIDS [Concomitant]

REACTIONS (4)
  - CARDIAC FAILURE [None]
  - CORONARY ARTERY DISEASE [None]
  - DIALYSIS [None]
  - RENAL FAILURE [None]
